FAERS Safety Report 16802836 (Version 3)
Quarter: 2019Q4

REPORT INFORMATION
  Report Type: Spontaneous
  Country: CN (occurrence: CN)
  Receive Date: 20190913
  Receipt Date: 20191017
  Transmission Date: 20200122
  Serious: Yes (Hospitalization)
  Sender: FDA-Public Use
  Company Number: CN-B.I. PHARMACEUTICALS,INC./RIDGEFIELD-2019-BI-101384

PATIENT
  Age: 64 Year
  Sex: Female
  Weight: 53 kg

DRUGS (8)
  1. CO-DIOVAN [Concomitant]
     Active Substance: HYDROCHLOROTHIAZIDE\VALSARTAN
     Indication: HYPERTENSION
     Route: 065
     Dates: start: 2015
  2. HYDROXYETHYL STARCH [Concomitant]
     Active Substance: HETASTARCH
     Indication: FLUID REPLACEMENT
     Route: 065
     Dates: start: 20190907, end: 20190908
  3. PRADAXA [Suspect]
     Active Substance: DABIGATRAN ETEXILATE MESYLATE
     Indication: ATRIAL FIBRILLATION
     Route: 065
     Dates: start: 201908, end: 20190906
  4. TETRACAINE HYDROCHLORIDE. [Concomitant]
     Active Substance: TETRACAINE HYDROCHLORIDE
     Indication: ULTRASOUND SCAN
     Route: 065
     Dates: start: 20190903, end: 20190904
  5. EUTHYROX [Concomitant]
     Active Substance: LEVOTHYROXINE SODIUM
     Indication: THYROIDECTOMY
     Route: 065
     Dates: start: 2009
  6. ESOMEPRAZOLE. [Concomitant]
     Active Substance: ESOMEPRAZOLE MAGNESIUM
     Indication: PROPHYLAXIS
     Route: 065
     Dates: start: 20190906
  7. POTASSIUM CHLORIDE. [Concomitant]
     Active Substance: POTASSIUM CHLORIDE
     Indication: MINERAL SUPPLEMENTATION
     Route: 065
     Dates: start: 20190906, end: 20190907
  8. TRAMADOL HYDROCHLORIDE. [Concomitant]
     Active Substance: TRAMADOL HYDROCHLORIDE
     Indication: PROCEDURAL PAIN
     Route: 065
     Dates: start: 20190908, end: 20190909

REACTIONS (1)
  - Pericardial haemorrhage [Recovered/Resolved]

NARRATIVE: CASE EVENT DATE: 20190907
